FAERS Safety Report 23558629 (Version 1)
Quarter: 2024Q1

REPORT INFORMATION
  Report Type: Other
  Country: IL (occurrence: IL)
  Receive Date: 20240223
  Receipt Date: 20240223
  Transmission Date: 20240410
  Serious: Yes (Life-Threatening, Hospitalization, Other)
  Sender: FDA-Public Use
  Company Number: IL-B.Braun Medical Inc.-2153606

PATIENT
  Age: 81 Year
  Sex: Female

DRUGS (6)
  1. SODIUM CHLORIDE [Suspect]
     Active Substance: SODIUM CHLORIDE
  2. CEFTRIAXONE [Concomitant]
     Active Substance: CEFTRIAXONE\CEFTRIAXONE SODIUM
  3. CLONIDINE [Concomitant]
     Active Substance: CLONIDINE
  4. SIMVASTATIN [Concomitant]
     Active Substance: SIMVASTATIN
  5. INSULIN HUMAN [Concomitant]
     Active Substance: INSULIN HUMAN
  6. AZITHROMYCIN [Concomitant]
     Active Substance: AZITHROMYCIN

REACTIONS (1)
  - Blood pressure increased [Recovered/Resolved]
